FAERS Safety Report 7450448-6 (Version None)
Quarter: 2011Q2

REPORT INFORMATION
  Report Type: 
  Country: None (occurrence: None)
  Receive Date: 20110502
  Receipt Date: 20110419
  Transmission Date: 20111010
  Serious: Yes (Other)
  Sender: FDA-Public Use
  Company Number: PHFR2010GB04471

PATIENT
  Sex: Male

DRUGS (4)
  1. PROCYCLIDINE HYDROCHLORIDE 2MG TAB [Concomitant]
     Indication: EXTRAPYRAMIDAL DISORDER
     Dosage: UNK
     Route: 048
  2. TEMAZEPAM [Suspect]
     Indication: ANXIETY
     Dosage: UNK
     Route: 048
  3. VENLAFAXINE [Concomitant]
     Indication: DEPRESSION
     Dosage: UNK
     Route: 048
  4. CLOZARIL [Suspect]
     Indication: SCHIZOPHRENIA
     Dosage: 650 MG, DAY
     Route: 048
     Dates: start: 20080807

REACTIONS (1)
  - PROSTATE CANCER [None]
